FAERS Safety Report 11753100 (Version 1)
Quarter: 2015Q4

REPORT INFORMATION
  Report Type: Spontaneous
  Country: FR (occurrence: FR)
  Receive Date: 20151119
  Receipt Date: 20151119
  Transmission Date: 20160304
  Serious: Yes (Hospitalization)
  Sender: FDA-Public Use
  Company Number: FR-ACCORD-035463

PATIENT
  Age: 13 Year
  Sex: Male

DRUGS (8)
  1. ONDANSETRON ACCORD [Suspect]
     Active Substance: ONDANSETRON
     Indication: PRODUCT USED FOR UNKNOWN INDICATION
     Dosage: STRENGTH: 2 MG/ ML. ?8 MG/12 HOURS FROM DAY 1 TO DAY 6.
     Route: 042
     Dates: start: 20150824
  2. ETOPOSIDE TEVA [Suspect]
     Active Substance: ETOPOSIDE
     Indication: PRODUCT USED FOR UNKNOWN INDICATION
     Dosage: 104 MG, 1 IN 24 HOURS, DAY 1 TO DAY 4
     Route: 042
     Dates: start: 20150916
  3. METHYLPREDNISOLONE MYLAN [Suspect]
     Active Substance: METHYLPREDNISOLONE
     Indication: PRODUCT USED FOR UNKNOWN INDICATION
     Dosage: 40MG, 1 IN 12 HOURS, DAY 1 TO DAY 4
     Route: 042
     Dates: start: 20150916
  4. HYDROXYZINE [Suspect]
     Active Substance: HYDROXYZINE\HYDROXYZINE HYDROCHLORIDE
     Indication: PRODUCT USED FOR UNKNOWN INDICATION
     Dosage: STRENGTH: 100 MG /2 ML. ?DAY 1 TO DAY 4
     Route: 042
     Dates: start: 20150916
  5. IFOSFAMIDE EG [Suspect]
     Active Substance: IFOSFAMIDE
     Indication: PRODUCT USED FOR UNKNOWN INDICATION
     Dosage: STRENGTH: 40 MG/ML. 1 IN 24 HOURS SOLUTION POUR PERFUSION. DAY 1 TO DAY 4
     Route: 042
     Dates: start: 20150916
  6. METHOTREXATE (METHOTREXATE SODIUM) [Suspect]
     Active Substance: METHOTREXATE SODIUM
     Indication: PRODUCT USED FOR UNKNOWN INDICATION
     Dosage: 12 G/M2.
     Route: 042
     Dates: start: 20150824
  7. UROMITEXAN [Suspect]
     Active Substance: MESNA
     Indication: PRODUCT USED FOR UNKNOWN INDICATION
     Dosage: 1300MG, 1 IN 4 HOURS, DAY 1 TO 4
     Route: 042
     Dates: start: 20150916
  8. LEVOFOLINATE [Concomitant]
     Active Substance: LEVOLEUCOVORIN CALCIUM
     Dosage: DAY 2 TO DAY 4
     Route: 042
     Dates: start: 20150824

REACTIONS (2)
  - Encephalopathy [Recovered/Resolved]
  - Eye pain [Unknown]

NARRATIVE: CASE EVENT DATE: 20150918
